FAERS Safety Report 13298136 (Version 1)
Quarter: 2017Q1

REPORT INFORMATION
  Report Type: Spontaneous
  Country: US (occurrence: US)
  Receive Date: 20170306
  Receipt Date: 20170306
  Transmission Date: 20170428
  Serious: Yes (Other)
  Sender: FDA-Public Use
  Company Number: US-TARO PHARMACEUTICALS USA.,INC-2017SUN00053

PATIENT
  Age: 58 Year
  Sex: Male

DRUGS (19)
  1. RIBAVIRIN. [Interacting]
     Active Substance: RIBAVIRIN
     Indication: HEPATITIS C
     Dosage: 600 MG, BID
     Route: 048
  2. WARFARIN [Interacting]
     Active Substance: WARFARIN
     Dosage: UNK
     Route: 048
     Dates: start: 2009
  3. VIEKIRA PAK [Interacting]
     Active Substance: DASABUVIR\OMBITASVIR\PARITAPREVIR\RITONAVIR
     Indication: HEPATITIS C
     Dosage: UNK
     Route: 065
  4. PANTOPRAZOLE [Concomitant]
     Active Substance: PANTOPRAZOLE SODIUM
     Indication: PRODUCT USED FOR UNKNOWN INDICATION
     Dosage: 20 MG, DAILY
     Route: 048
  5. WARFARIN [Suspect]
     Active Substance: WARFARIN
     Indication: ANTICOAGULANT THERAPY
     Dosage: 5 MG 5 DAYS A WEEK AND 7.5 MG 2 DAYS A WEEK (40 MG/WK)
     Route: 048
  6. WARFARIN [Interacting]
     Active Substance: WARFARIN
     Dosage: 90 MG, WEEKLY
     Route: 048
  7. DILTIAZEM CD [Concomitant]
     Active Substance: DILTIAZEM
     Indication: PRODUCT USED FOR UNKNOWN INDICATION
     Dosage: 120 MG ONCE DAILY
     Route: 048
  8. NITROGLYCERIN. [Concomitant]
     Active Substance: NITROGLYCERIN
     Indication: CHEST PAIN
     Dosage: 0.4 MG AS DIRECTED
     Route: 060
  9. WARFARIN [Interacting]
     Active Substance: WARFARIN
     Dosage: 47.5 MG, WEEKLY
     Route: 048
  10. WARFARIN [Interacting]
     Active Substance: WARFARIN
     Dosage: 75 MG, WEEKLY
     Route: 048
  11. WARFARIN [Interacting]
     Active Substance: WARFARIN
     Dosage: 80 MG, WEEKLY
     Route: 048
  12. WARFARIN [Interacting]
     Active Substance: WARFARIN
     Dosage: 55 MG, WEEKLY
     Route: 048
  13. WARFARIN [Interacting]
     Active Substance: WARFARIN
     Dosage: 5 MG 4 DAYS A WEEK AND 7.5 MG 3 DAYS A WEEK (42.5 MG/WK)
     Route: 048
  14. LISINOPRIL. [Concomitant]
     Active Substance: LISINOPRIL
     Indication: PRODUCT USED FOR UNKNOWN INDICATION
     Dosage: 2.5 MG, DAILY
     Route: 048
  15. RIBAVIRIN. [Interacting]
     Active Substance: RIBAVIRIN
     Dosage: 600 MG EVERY MORNING AND 400 MG EVERY EVENING
     Route: 048
  16. ACETAMINOPHEN. [Concomitant]
     Active Substance: ACETAMINOPHEN
     Indication: PAIN
     Dosage: 1000 MG TWICE DAILY AS NEEDED
     Route: 048
  17. WARFARIN [Interacting]
     Active Substance: WARFARIN
     Dosage: 70 MG, WEEKLY
     Route: 048
  18. WARFARIN [Interacting]
     Active Substance: WARFARIN
     Dosage: 5 MG 5 DAYS A WEEK AND 7.5 MG 2 DAYS A WEEK (40 MG/WK)
     Route: 048
  19. MULTIVITAMIN [Concomitant]
     Active Substance: VITAMINS
     Indication: PRODUCT USED FOR UNKNOWN INDICATION
     Dosage: ONE TABLET ONCE DAILY
     Route: 048

REACTIONS (4)
  - Haematuria [Recovered/Resolved]
  - Drug interaction [Recovered/Resolved]
  - Anticoagulation drug level below therapeutic [Recovered/Resolved]
  - International normalised ratio increased [Recovered/Resolved]
